FAERS Safety Report 10062899 (Version 1)
Quarter: 2014Q1

REPORT INFORMATION
  Report Type: Spontaneous
  Country: US (occurrence: None)
  Receive Date: 20140328
  Receipt Date: 20140328
  Transmission Date: 20141002
  Serious: No
  Sender: FDA-Public Use
  Company Number: 1000054615

PATIENT
  Age: 14 Year
  Sex: Male

DRUGS (1)
  1. LINZESS [Suspect]
     Dosage: 580 MCG (290 MCG,ONCE),ORAL
     Route: 048
     Dates: start: 20140211, end: 20140211

REACTIONS (8)
  - Accidental exposure to product by child [None]
  - Ocular hyperaemia [None]
  - Mydriasis [None]
  - Diarrhoea [None]
  - Vomiting [None]
  - Feeling abnormal [None]
  - Asthenia [None]
  - Lethargy [None]
